FAERS Safety Report 8393911-6 (Version None)
Quarter: 2012Q2

REPORT INFORMATION
  Report Type: 
  Country: None (occurrence: None)
  Receive Date: 20120516
  Receipt Date: 20120510
  Transmission Date: 20120825
  Serious: Yes (Hospitalization)
  Sender: FDA-Public Use
  Company Number: 2012SP020274

PATIENT
  Age: 53 Year
  Sex: Female

DRUGS (6)
  1. ISENTRESS [Concomitant]
  2. PEGASYS [Suspect]
     Indication: HEPATITIS C
     Dosage: 180 MCG;QW;SC
     Route: 058
     Dates: start: 20110929, end: 20120419
  3. TRUVADA [Concomitant]
  4. COPEGUS [Suspect]
     Indication: HEPATITIS C
     Dosage: 200 MG;TID
     Dates: start: 20110929, end: 20120419
  5. VICTRELIS [Suspect]
     Indication: HEPATITIS C
     Dosage: 800 MG;TID;PO
     Route: 048
     Dates: start: 20111026, end: 20120418
  6. NEORECORMON [Concomitant]

REACTIONS (18)
  - LUNG DISORDER [None]
  - HAEMOGLOBIN DECREASED [None]
  - CYSTITIS [None]
  - FUNGAL TEST POSITIVE [None]
  - ESCHERICHIA INFECTION [None]
  - RENAL FAILURE ACUTE [None]
  - SEPSIS [None]
  - TACHYCARDIA [None]
  - HYPONATRAEMIA [None]
  - LUNG INFECTION [None]
  - PULMONARY ARTERY DILATATION [None]
  - DYSPNOEA EXERTIONAL [None]
  - DIZZINESS [None]
  - PULMONARY ARTERIAL HYPERTENSION [None]
  - PROTEUS INFECTION [None]
  - PYELONEPHRITIS [None]
  - LEUKOCYTOSIS [None]
  - RESPIRATORY ALKALOSIS [None]
